FAERS Safety Report 8574669-4 (Version None)
Quarter: 2012Q3

REPORT INFORMATION
  Report Type: 
  Country: None (occurrence: None)
  Receive Date: 20120807
  Receipt Date: 20120726
  Transmission Date: 20120928
  Serious: Yes (Other)
  Sender: FDA-Public Use
  Company Number: CA-BRISTOL-MYERS SQUIBB COMPANY-16828295

PATIENT
  Age: 48 Year
  Sex: Female

DRUGS (4)
  1. ARAVA [Concomitant]
  2. TRIDURAL [Concomitant]
  3. ORENCIA [Suspect]
     Indication: RHEUMATOID ARTHRITIS
     Dosage: LAST INF:19JUL2012,NO OF INF:1
     Route: 042
     Dates: start: 20120719
  4. IBUPROFEN [Concomitant]

REACTIONS (1)
  - THROMBOSIS [None]
